FAERS Safety Report 12582941 (Version 2)
Quarter: 2016Q4

REPORT INFORMATION
  Report Type: Report from Study
  Country: US (occurrence: US)
  Receive Date: 20160722
  Receipt Date: 20161005
  Transmission Date: 20170207
  Serious: Yes (Hospitalization, Other)
  Sender: FDA-Public Use
  Company Number: US-BAYER-2016-031476

PATIENT
  Age: 64 Year
  Sex: Female

DRUGS (3)
  1. NEXAVAR [Suspect]
     Active Substance: SORAFENIB
     Indication: HEPATIC CANCER
     Dosage: 400 MG, BID
     Route: 048
     Dates: start: 2016
  2. NEXAVAR [Suspect]
     Active Substance: SORAFENIB
     Indication: HEPATIC CANCER
     Dosage: 400 MG, BID
     Route: 048
     Dates: end: 2016
  3. NEXAVAR [Suspect]
     Active Substance: SORAFENIB
     Indication: HEPATIC CANCER
     Dosage: 200 MG, BID
     Route: 048
     Dates: start: 20160209

REACTIONS (22)
  - Palmar-plantar erythrodysaesthesia syndrome [None]
  - Headache [None]
  - Vomiting [None]
  - Malaise [None]
  - Staphylococcal infection [None]
  - Gait disturbance [None]
  - Fatigue [None]
  - Diarrhoea [None]
  - Activities of daily living impaired [None]
  - Pain in extremity [None]
  - Alopecia [None]
  - Limb operation [None]
  - Muscle spasms [None]
  - Abdominal pain [None]
  - Dry skin [Recovering/Resolving]
  - Abdominal discomfort [None]
  - Finger amputation [None]
  - Oral infection [None]
  - Rash macular [None]
  - Abdominal pain upper [None]
  - Skin infection [None]
  - Nausea [None]

NARRATIVE: CASE EVENT DATE: 2016
